FAERS Safety Report 9160143 (Version 2)
Quarter: 2013Q1

REPORT INFORMATION
  Report Type: Spontaneous
  Country: JP (occurrence: JP)
  Receive Date: 20130313
  Receipt Date: 20130322
  Transmission Date: 20140127
  Serious: Yes (Other)
  Sender: FDA-Public Use
  Company Number: JP-PFIZER INC-2013078389

PATIENT
  Age: 65 Year
  Sex: Male

DRUGS (3)
  1. IDAMYCIN [Suspect]
     Indication: ACUTE MYELOID LEUKAEMIA
     Dosage: UNK
     Dates: start: 200912, end: 201004
  2. CYTARABINE [Suspect]
     Indication: ACUTE MYELOID LEUKAEMIA
     Dosage: UNK
     Dates: end: 201004
  3. MITOXANTRONE [Concomitant]
     Indication: ACUTE MYELOID LEUKAEMIA
     Dosage: UNK

REACTIONS (2)
  - Second primary malignancy [Recovered/Resolved]
  - Myelodysplastic syndrome [Recovered/Resolved]
